FAERS Safety Report 10308464 (Version 2)
Quarter: 2014Q3

REPORT INFORMATION
  Report Type: Spontaneous
  Country: US (occurrence: US)
  Receive Date: 20140716
  Receipt Date: 20140716
  Transmission Date: 20150326
  Serious: Yes (Hospitalization, Other)
  Sender: FDA-Public Use
  Company Number: US-009507513-2010SP019147

PATIENT
  Sex: Female
  Weight: 89.81 kg

DRUGS (4)
  1. NUVARING [Suspect]
     Active Substance: ETHINYL ESTRADIOL\ETONOGESTREL
     Dosage: UNK
     Route: 067
     Dates: start: 20060208, end: 20080417
  2. NUVARING [Suspect]
     Active Substance: ETHINYL ESTRADIOL\ETONOGESTREL
     Dosage: UNK
     Route: 067
     Dates: start: 20090105, end: 20090831
  3. NUVARING [Suspect]
     Active Substance: ETHINYL ESTRADIOL\ETONOGESTREL
     Indication: CONTRACEPTION
     Route: 067
     Dates: start: 200410, end: 200512
  4. ADDERALL [Concomitant]
     Active Substance: AMPHETAMINE ASPARTATE\AMPHETAMINE SULFATE\DEXTROAMPHETAMINE SACCHARATE\DEXTROAMPHETAMINE SULFATE
     Indication: ATTENTION DEFICIT/HYPERACTIVITY DISORDER

REACTIONS (13)
  - Headache [Recovered/Resolved]
  - Dermal cyst [Unknown]
  - Visual acuity reduced [Not Recovered/Not Resolved]
  - Weight decreased [Unknown]
  - Nasal congestion [Unknown]
  - Acne [Unknown]
  - Attention deficit/hyperactivity disorder [Unknown]
  - Papilloedema [Unknown]
  - Cerebrovascular accident [Not Recovered/Not Resolved]
  - Incorrect drug administration duration [Unknown]
  - Bronchitis [Unknown]
  - Migraine with aura [Unknown]
  - Libido decreased [Unknown]

NARRATIVE: CASE EVENT DATE: 2005
